FAERS Safety Report 17171280 (Version 1)
Quarter: 2019Q4

REPORT INFORMATION
  Report Type: Spontaneous
  Country: US (occurrence: US)
  Receive Date: 20191218
  Receipt Date: 20191218
  Transmission Date: 20200122
  Serious: No
  Sender: FDA-Public Use
  Company Number: US-SUPERNUS PHARMACEUTICALS, INC.-2018SUP00346

PATIENT
  Age: 45 Year
  Sex: Female
  Weight: 71.2 kg

DRUGS (4)
  1. UNSPECIFIED COLD AND SINUS (NON-COMPANY) [Suspect]
     Active Substance: UNSPECIFIED INGREDIENT
  2. TROKENDI XR [Suspect]
     Active Substance: TOPIRAMATE
     Dosage: 25 MG, 1X/DAY
     Route: 048
     Dates: start: 20181205
  3. TROKENDI XR [Suspect]
     Active Substance: TOPIRAMATE
     Indication: PRIMARY HEADACHE ASSOCIATED WITH SEXUAL ACTIVITY
     Dosage: 50 MG, 1X/DAY
     Route: 048
     Dates: start: 20181203, end: 20181204
  4. TROKENDI XR [Suspect]
     Active Substance: TOPIRAMATE
     Indication: PRIMARY HEADACHE ASSOCIATED WITH SEXUAL ACTIVITY
     Dosage: 25 MG, 1X/DAY
     Route: 048
     Dates: start: 20181126, end: 20181202

REACTIONS (8)
  - Sinusitis [Not Recovered/Not Resolved]
  - Taste disorder [Not Recovered/Not Resolved]
  - Tension headache [Not Recovered/Not Resolved]
  - Paranasal sinus discomfort [Not Recovered/Not Resolved]
  - Disturbance in attention [Not Recovered/Not Resolved]
  - Off label use [Not Recovered/Not Resolved]
  - Feeling abnormal [Not Recovered/Not Resolved]
  - Fatigue [Recovering/Resolving]

NARRATIVE: CASE EVENT DATE: 2018
